FAERS Safety Report 4357731-1 (Version None)
Quarter: 2004Q2

REPORT INFORMATION
  Report Type: 
  Country: None (occurrence: None)
  Receive Date: 20040513
  Receipt Date: 20040429
  Transmission Date: 20050107
  Serious: Yes (Other)
  Sender: FDA-Public Use
  Company Number: DE-GLAXOSMITHKLINE-D0043702A

PATIENT
  Age: 78 Year
  Sex: Male

DRUGS (3)
  1. AVODART [Suspect]
     Route: 048
     Dates: start: 20040301, end: 20040401
  2. MARCUMAR [Suspect]
     Indication: PULMONARY EMBOLISM
     Route: 048
     Dates: start: 19980101
  3. SANASTHMYL [Concomitant]
     Indication: ASTHMA
     Route: 055
     Dates: start: 19980101

REACTIONS (2)
  - DRUG INTERACTION [None]
  - PROTHROMBIN TIME PROLONGED [None]
